FAERS Safety Report 12144459 (Version 4)
Quarter: 2017Q1

REPORT INFORMATION
  Report Type: Spontaneous
  Country: US (occurrence: US)
  Receive Date: 20160304
  Receipt Date: 20170118
  Transmission Date: 20170428
  Serious: No
  Sender: FDA-Public Use
  Company Number: US-PFIZER INC-2016136449

PATIENT
  Age: 56 Year
  Sex: Male

DRUGS (12)
  1. IBUPROFEN. [Concomitant]
     Active Substance: IBUPROFEN
     Dosage: 800 MG, AS NEEDED (800 MG, TAKE 1 TABLET 3 TIMES DAILY AS NEEDED)
     Route: 048
     Dates: start: 20151006
  2. CLONAZEPAM. [Concomitant]
     Active Substance: CLONAZEPAM
     Dosage: 1 MG, AS NEEDED (1 MG, TAKE 1 TABLET EVERY 6 HOURS AS NEEDED)
     Route: 048
     Dates: start: 20120904
  3. GABAPENTIN. [Concomitant]
     Active Substance: GABAPENTIN
     Dosage: 800 MG, 4X/DAY
     Route: 048
     Dates: start: 20120403
  4. PERCOCET [Concomitant]
     Active Substance: ACETAMINOPHEN\OXYCODONE HYDROCHLORIDE
     Indication: PAIN
     Dosage: 1 DF, AS NEEDED [OXYCODONE HYDROCHLORIDE:10 MG]/[PARACETAMOL: 325 MG]1 TABLET EVERY 4- HOURS A NEED)
     Route: 048
     Dates: start: 20130422
  5. NICOTROL [Suspect]
     Active Substance: NICOTINE
     Dosage: 10 MG, UNK (USE 1 6 TIMES DAILY)
     Dates: start: 20141110
  6. DOXEPIN HCL [Concomitant]
     Active Substance: DOXEPIN HYDROCHLORIDE
     Dosage: 100 MG, 3X/DAY (50 MG, TAKE 2 CAPSULE 3 TIMES DAILY)
     Route: 048
     Dates: start: 20121004
  7. TRAMADOL HCL [Concomitant]
     Active Substance: TRAMADOL HYDROCHLORIDE
     Indication: BREAKTHROUGH PAIN
     Dosage: 50 MG, AS NEEDED (TAKE 1 TABLET 3 TIMES DAILY AS NEEDED)
     Route: 048
     Dates: start: 20120709
  8. NICOTROL [Suspect]
     Active Substance: NICOTINE
     Indication: SMOKING CESSATION THERAPY
     Dosage: UNK
     Dates: start: 2005
  9. VIAGRA [Concomitant]
     Active Substance: SILDENAFIL CITRATE
     Dosage: 100 MG, DAILY (Q DAY 1 HR BEFORE NEEDED)
     Route: 048
     Dates: start: 20150105
  10. ACIDOPHILUS [Concomitant]
     Active Substance: LACTOBACILLUS ACIDOPHILUS
     Dosage: 100 MG, DAILY
     Route: 048
     Dates: start: 20141212
  11. NICOTROL [Suspect]
     Active Substance: NICOTINE
     Dosage: 10 MG, (8-10X DAY)
     Dates: start: 2015
  12. CYCLOBENZAPRINE HCL [Concomitant]
     Active Substance: CYCLOBENZAPRINE HYDROCHLORIDE
     Indication: MUSCLE SPASMS
     Dosage: 10 MG, AS NEEDED (10 MG ORAL TABLET 1 PO TID PRN)
     Route: 048
     Dates: start: 20150416

REACTIONS (1)
  - Nasal discomfort [Recovered/Resolved]
